FAERS Safety Report 7167059-2 (Version None)
Quarter: 2010Q4

REPORT INFORMATION
  Report Type: 
  Country: None (occurrence: None)
  Receive Date: 20101213
  Receipt Date: 20101213
  Transmission Date: 20110411
  Serious: No
  Sender: FDA-Public Use
  Company Number: None

PATIENT
  Age: 60 Year
  Sex: Female
  Weight: 95.2554 kg

DRUGS (1)
  1. BENICAR [Suspect]
     Indication: BLOOD PRESSURE ABNORMAL
     Dosage: 20 MG ONCE A DAY PO
     Route: 048
     Dates: start: 20080101

REACTIONS (4)
  - DIZZINESS [None]
  - NAUSEA [None]
  - VERTIGO [None]
  - VOMITING [None]
